FAERS Safety Report 18548048 (Version 1)
Quarter: 2020Q4

REPORT INFORMATION
  Report Type: Report from Study
  Country: CN (occurrence: CN)
  Receive Date: 20201126
  Receipt Date: 20201126
  Transmission Date: 20210114
  Serious: Yes (Death, Other)
  Sender: FDA-Public Use
  Company Number: CN-BRISTOL-MYERS SQUIBB COMPANY-BMS-2020-099585

PATIENT
  Age: 66 Year
  Sex: Male

DRUGS (1)
  1. NIVOLUMAB [Suspect]
     Active Substance: NIVOLUMAB
     Indication: HEAD AND NECK CANCER
     Dosage: 127 MILLIGRAM
     Route: 042
     Dates: start: 201911, end: 202008

REACTIONS (2)
  - Malignant neoplasm progression [Unknown]
  - Respiratory tract congestion [Fatal]

NARRATIVE: CASE EVENT DATE: 20201107
